FAERS Safety Report 7966349-0 (Version None)
Quarter: 2011Q4

REPORT INFORMATION
  Report Type: 
  Country: None (occurrence: None)
  Receive Date: 20111208
  Receipt Date: 20111207
  Transmission Date: 20120403
  Serious: Yes (Death, Hospitalization, Other)
  Sender: FDA-Public Use
  Company Number: DE-ABBOTT-11P-062-0696930-00

PATIENT
  Sex: Male
  Weight: 83.6 kg

DRUGS (12)
  1. HUMIRA [Suspect]
     Route: 058
     Dates: start: 20100901, end: 20101201
  2. LEVOTHYROXINE SODIUM [Concomitant]
     Indication: PRODUCT USED FOR UNKNOWN INDICATION
     Dates: start: 20090201
  3. PREGABALIN [Concomitant]
     Indication: PRODUCT USED FOR UNKNOWN INDICATION
     Dates: start: 20100722
  4. HUMIRA [Suspect]
     Indication: PSORIATIC ARTHROPATHY
     Route: 058
     Dates: start: 20051102, end: 20100830
  5. HUMIRA [Suspect]
     Route: 058
     Dates: start: 20100830, end: 20100901
  6. BISOPROLOL FUMARATE [Concomitant]
     Indication: PRODUCT USED FOR UNKNOWN INDICATION
  7. METHOTREXATE [Concomitant]
     Indication: PSORIATIC ARTHROPATHY
     Dates: end: 20051101
  8. NOVALGIN [Concomitant]
     Indication: PRODUCT USED FOR UNKNOWN INDICATION
  9. OLIBANUM [Suspect]
     Indication: ARTHRITIS
     Route: 048
  10. MIRTAZAPINE [Concomitant]
     Indication: PRODUCT USED FOR UNKNOWN INDICATION
  11. HUMIRA [Suspect]
  12. TAMSULOSIN HCL [Concomitant]
     Indication: PRODUCT USED FOR UNKNOWN INDICATION
     Dates: start: 20081216

REACTIONS (9)
  - DEHYDRATION [None]
  - HEPATIC FAILURE [None]
  - FATIGUE [None]
  - ABDOMINAL DISCOMFORT [None]
  - CONSTIPATION [None]
  - ASTHENIA [None]
  - ABDOMINAL PAIN [None]
  - METASTASES TO LIVER [None]
  - METASTATIC NEOPLASM [None]
